FAERS Safety Report 8790781 (Version 1)
Quarter: 2012Q4

REPORT INFORMATION
  Report Type: Spontaneous
  Country: US (occurrence: None)
  Receive Date: 20120913
  Receipt Date: 20120913
  Transmission Date: 20130627
  Serious: Yes (Hospitalization, Disabling)
  Sender: FDA-Public Use
  Company Number: None

PATIENT
  Age: 53 Year
  Sex: Male
  Weight: 79.38 kg

DRUGS (1)
  1. PROPECIA [Suspect]
     Dosage: Unable to establish end date of med.
     Dates: start: 20120306

REACTIONS (5)
  - Nervous system disorder [None]
  - Cognitive disorder [None]
  - Erectile dysfunction [None]
  - Convulsion [None]
  - Toxicity to various agents [None]
